FAERS Safety Report 26074292 (Version 2)
Quarter: 2025Q4

REPORT INFORMATION
  Report Type: Spontaneous
  Country: EU (occurrence: EU)
  Receive Date: 20251121
  Receipt Date: 20251204
  Transmission Date: 20260118
  Serious: Yes (Death, Life-Threatening, Hospitalization, Other)
  Sender: CELLTRION
  Company Number: EU-ROCHE-10000426301

PATIENT

DRUGS (34)
  1. RITUXIMAB [Suspect]
     Active Substance: RITUXIMAB
     Indication: Acute lymphocytic leukaemia
     Dosage: UNK
     Route: 065
  2. RITUXIMAB [Suspect]
     Active Substance: RITUXIMAB
     Indication: B-cell type acute leukaemia
     Dosage: REMISSION-INDUCTION PHASE II D20
     Route: 037
  3. RITUXIMAB [Suspect]
     Active Substance: RITUXIMAB
     Dosage: CONSOLIDATION CHEMOTHERAPY D1
     Route: 065
  4. RITUXIMAB [Suspect]
     Active Substance: RITUXIMAB
     Dosage: REMISSION-INDUCTION PHASE I D6
     Route: 065
  5. RITUXIMAB [Suspect]
     Active Substance: RITUXIMAB
     Dosage: INDUCTION PHASE I: D6; INDUCTION PHASE II: D20; CONSOLIDATION CHEMOTHERAPY: D1, EVERY 1 DAY
  6. CYCLOPHOSPHAMIDE [Suspect]
     Active Substance: CYCLOPHOSPHAMIDE
     Indication: Acute lymphocytic leukaemia
     Dosage: UNK
     Route: 065
  7. CYCLOPHOSPHAMIDE [Suspect]
     Active Substance: CYCLOPHOSPHAMIDE
     Indication: B-cell type acute leukaemia
     Dosage: REMISSION INDUCTION PHASE II D21, 35
     Route: 065
  8. CYCLOPHOSPHAMIDE [Suspect]
     Active Substance: CYCLOPHOSPHAMIDE
     Dosage: PRE PHASE D3-5
     Route: 065
  9. CYCLOPHOSPHAMIDE [Suspect]
     Active Substance: CYCLOPHOSPHAMIDE
     Dosage: PRE-PHASE THERAPY: D3-5; INDUCTION PHASE II: D21, 35, EVERY 1 DAY
  10. CYTARABINE [Suspect]
     Active Substance: CYTARABINE
     Indication: Acute lymphocytic leukaemia
     Dosage: UNK
     Route: 065
  11. CYTARABINE [Suspect]
     Active Substance: CYTARABINE
     Indication: B-cell type acute leukaemia
     Dosage: REMISSION-INDUCTION PHASE II D21, 28, 35
     Route: 037
  12. CYTARABINE [Suspect]
     Active Substance: CYTARABINE
     Dosage: REMISSION-INDUCTION PHASE I D13
     Route: 037
  13. CYTARABINE [Suspect]
     Active Substance: CYTARABINE
     Dosage: INDUCTION PHASE I: D13; INDUCTION PHASE II: D21, 28, 35 , EVERY 1 DAY
     Route: 037
  14. CYTARABINE [Suspect]
     Active Substance: CYTARABINE
     Dosage: INDUCTION PHASE II: D22-25, 29-32, EVERY 1 DAY
  15. VINCRISTINE [Suspect]
     Active Substance: VINCRISTINE
     Indication: Acute lymphocytic leukaemia
     Dosage: UNK
     Route: 065
  16. VINCRISTINE [Suspect]
     Active Substance: VINCRISTINE
     Indication: B-cell type acute leukaemia
     Dosage: REMISSION-INDUCTION PHASE I D7, 14
     Route: 065
  17. VINCRISTINE [Suspect]
     Active Substance: VINCRISTINE
     Dosage: INDUCTION PHASE I: D7, 14, EVERY 1 DAY
  18. IDARUBICIN [Suspect]
     Active Substance: IDARUBICIN
     Indication: Acute lymphocytic leukaemia
     Dosage: UNK
     Route: 065
  19. IDARUBICIN [Suspect]
     Active Substance: IDARUBICIN
     Indication: B-cell type acute leukaemia
     Dosage: REMISSION-INDUCTION PHASE I D7, 8, 14, 15
     Route: 065
  20. IDARUBICIN [Suspect]
     Active Substance: IDARUBICIN
     Dosage: INDUCTION PHASE I: D7, 8, 14, 15, EVERY 1 DAY
  21. DEXAMETHASONE [Suspect]
     Active Substance: DEXAMETHASONE
     Indication: Acute lymphocytic leukaemia
     Dosage: UNK
     Route: 065
  22. DEXAMETHASONE [Suspect]
     Active Substance: DEXAMETHASONE
     Indication: B-cell type acute leukaemia
     Dosage: DIAGNOSTIC AND PRE-PHASE THERAPY D1-5
     Route: 037
  23. DEXAMETHASONE [Suspect]
     Active Substance: DEXAMETHASONE
     Dosage: REMISSION-INDUCTION PHASE I D7, 8, D13, 14-17
     Route: 037
  24. DEXAMETHASONE [Suspect]
     Active Substance: DEXAMETHASONE
     Dosage: REMISSION-INDUCTION PHASE II D7, 8, 14-17, D21, 28, 35
     Route: 037
  25. DEXAMETHASONE [Suspect]
     Active Substance: DEXAMETHASONE
     Dosage: PRE-PHASE THERAPY: D1-5; INDUCTION PHASE I: D7, 8, 14-17; INDUCTION PHASE II: D7, 8, 14-17, EVERY 1
  26. DEXAMETHASONE [Suspect]
     Active Substance: DEXAMETHASONE
     Dosage: INDUCTION PHASE I: D13; INDUCTION PHASE II: D21, 28, 35, EVERY 1 DAY
     Route: 037
  27. METHOTREXATE [Suspect]
     Active Substance: METHOTREXATE
     Indication: Acute lymphocytic leukaemia
     Dosage: UNK
     Route: 037
  28. METHOTREXATE [Suspect]
     Active Substance: METHOTREXATE
     Indication: B-cell type acute leukaemia
     Dosage: DIAGNOSTIC AND PRE-PHASE THERAPY D5
     Route: 037
  29. METHOTREXATE [Suspect]
     Active Substance: METHOTREXATE
     Dosage: REMISSION-INDUCTION PHASE II D21, 28, 35
     Route: 037
  30. METHOTREXATE [Suspect]
     Active Substance: METHOTREXATE
     Dosage: REMISSION-INDUCTION PHASE I D13
     Route: 037
  31. METHOTREXATE [Suspect]
     Active Substance: METHOTREXATE
     Dosage: CONSOLIDATION CHEMOTHERAPY: HDMTX D2, 16 , EVERY 1 DAY
     Route: 037
  32. METHOTREXATE [Suspect]
     Active Substance: METHOTREXATE
     Dosage: PRE-PHASE THERAPY: D5; INDUCTION PHASE I: D13; INDUCTION PHASE II: D21, 28, 35, EVERY 1 DAY
     Route: 037
  33. PEG/L-ASPARAGINASE [Suspect]
     Active Substance: PEGASPARGASE
     Indication: Acute lymphocytic leukaemia
     Dosage: UNK
     Route: 065
  34. PEG/L-ASPARAGINASE [Suspect]
     Active Substance: PEGASPARGASE
     Indication: B-cell type acute leukaemia
     Dosage: CONSOLIDATION CHEMOTHERAPY: D3, 17, EVERY 1 DAY

REACTIONS (18)
  - Death [Fatal]
  - Multiple organ dysfunction syndrome [Fatal]
  - Pneumonia [Fatal]
  - Septic shock [Fatal]
  - Thrombocytopenia [Unknown]
  - Anaemia [Unknown]
  - Subdural haematoma [Unknown]
  - Hyperbilirubinaemia [Recovered/Resolved]
  - Seizure [Unknown]
  - Sepsis [Unknown]
  - Septic encephalopathy [Unknown]
  - Anaphylactic reaction [Unknown]
  - Haematological infection [Unknown]
  - Rash [Unknown]
  - Supraventricular tachycardia [Unknown]
  - Antithrombin III deficiency [Unknown]
  - Lipase increased [Unknown]
  - Intentional product use issue [Unknown]
